FAERS Safety Report 23082767 (Version 2)
Quarter: 2023Q4

REPORT INFORMATION
  Report Type: Report from Study
  Country: PA (occurrence: PA)
  Receive Date: 20231019
  Receipt Date: 20231027
  Transmission Date: 20240110
  Serious: Yes (Hospitalization, Other)
  Sender: FDA-Public Use
  Company Number: PA-JNJFOC-20231015327

PATIENT
  Age: 27 Year
  Sex: Male

DRUGS (1)
  1. SPRAVATO [Suspect]
     Active Substance: ESKETAMINE
     Indication: Depression
     Route: 045

REACTIONS (7)
  - Aggression [Unknown]
  - Hypertension [Not Recovered/Not Resolved]
  - Communication disorder [Unknown]
  - Dizziness [Recovered/Resolved]
  - Headache [Recovered/Resolved]
  - Anxiety [Unknown]
  - Off label use [Unknown]
